FAERS Safety Report 4430267-5 (Version None)
Quarter: 2004Q3

REPORT INFORMATION
  Report Type: 
  Country: None (occurrence: None)
  Receive Date: 20040820
  Receipt Date: 20040809
  Transmission Date: 20050211
  Serious: Yes (Other)
  Sender: FDA-Public Use
  Company Number: CN-GLAXOSMITHKLINE-B0342325A

PATIENT
  Age: 32 Year
  Sex: Female

DRUGS (2)
  1. HEPTODIN [Suspect]
     Indication: HEPATITIS B
     Route: 048
  2. GAN-LI-XIN [Concomitant]
     Indication: ALANINE AMINOTRANSFERASE ABNORMAL

REACTIONS (2)
  - OSTEONECROSIS [None]
  - PAIN IN EXTREMITY [None]
